FAERS Safety Report 7129070-7 (Version None)
Quarter: 2010Q4

REPORT INFORMATION
  Report Type: 
  Country: None (occurrence: None)
  Receive Date: 20101130
  Receipt Date: 20101116
  Transmission Date: 20110411
  Serious: Yes (Hospitalization)
  Sender: FDA-Public Use
  Company Number: JP-B.I. PHARMACEUTICALS,INC./RIDGEFIELD-2010-DE-06387GD

PATIENT
  Age: 75 Year
  Sex: Male

DRUGS (2)
  1. PRAMIPEXOLE [Suspect]
     Indication: PARKINSON'S DISEASE
  2. L-DOPA [Suspect]
     Indication: PARKINSON'S DISEASE
     Dosage: 250 MG

REACTIONS (5)
  - HALLUCINATION, AUDITORY [None]
  - HALLUCINATION, VISUAL [None]
  - JEALOUS DELUSION [None]
  - PERSECUTORY DELUSION [None]
  - PSYCHOTIC DISORDER [None]
